FAERS Safety Report 18723577 (Version 1)
Quarter: 2021Q1

REPORT INFORMATION
  Report Type: Spontaneous
  Country: US (occurrence: US)
  Receive Date: 20210108
  Receipt Date: 20210108
  Transmission Date: 20210419
  Serious: No
  Sender: FDA-Public Use
  Company Number: None

PATIENT
  Age: 59 Year
  Sex: Female
  Weight: 114.8 kg

DRUGS (6)
  1. APREPITANT. [Concomitant]
     Active Substance: APREPITANT
     Dates: start: 20201230
  2. PACLITAXEL. [Suspect]
     Active Substance: PACLITAXEL
     Indication: ENDOMETRIAL CANCER
     Dosage: ?          OTHER FREQUENCY:EVERY 21 DAYS;?
     Route: 042
     Dates: start: 20201230
  3. DIPHENHYDRAMINE. [Concomitant]
     Active Substance: DIPHENHYDRAMINE
     Dates: start: 20201230
  4. PALONOSETRON. [Concomitant]
     Active Substance: PALONOSETRON HYDROCHLORIDE
     Dates: start: 20201230
  5. DEXAMETHASONE. [Concomitant]
     Active Substance: DEXAMETHASONE
     Dates: start: 20201230
  6. FAMOTIDINE. [Concomitant]
     Active Substance: FAMOTIDINE
     Dates: start: 20201230

REACTIONS (3)
  - Back pain [None]
  - Nausea [None]
  - Flushing [None]

NARRATIVE: CASE EVENT DATE: 20201230
